FAERS Safety Report 8183942-3 (Version None)
Quarter: 2012Q1

REPORT INFORMATION
  Report Type: 
  Country: None (occurrence: None)
  Receive Date: 20120305
  Receipt Date: 20120127
  Transmission Date: 20120608
  Serious: Yes (Hospitalization)
  Sender: FDA-Public Use
  Company Number: FR-PFIZER INC-K200901230

PATIENT
  Age: 85 Year
  Sex: Male

DRUGS (13)
  1. ALDACTONE [Suspect]
     Dosage: 25 MG, 1X/DAY
     Route: 048
     Dates: end: 20090309
  2. CELECTOL [Suspect]
     Dosage: 100 MG, 1X/DAY
     Route: 048
     Dates: end: 20090309
  3. GABAPENTIN [Suspect]
     Indication: GAIT DISTURBANCE
     Dosage: 900 MG, 1X/DAY
     Route: 048
     Dates: start: 20090201, end: 20090309
  4. BETAHISTINE HYDROCHLORIDE [Concomitant]
     Dosage: UNK
     Route: 048
  5. ISOSORBIDE MONONITRATE [Suspect]
     Dosage: 80 MG, 1X/DAY
     Route: 048
     Dates: end: 20090309
  6. FUROSEMIDE [Concomitant]
     Dosage: UNK
  7. SIMVASTATIN [Concomitant]
     Dosage: UNK
     Route: 048
  8. PLAVIX [Concomitant]
     Dosage: UNK
     Route: 048
  9. POTASSIUM CHLORIDE [Concomitant]
     Dosage: UNK
     Route: 048
  10. RAMIPRIL [Suspect]
     Dosage: 10 MG, 1X/DAY
     Route: 048
     Dates: end: 20090309
  11. MODOPAR [Suspect]
     Dosage: 375 MG, 1X/DAY
     Route: 048
     Dates: start: 20090201, end: 20090309
  12. ASPIRIN [Concomitant]
     Dosage: UNK
  13. ALLOPURINOL [Concomitant]
     Dosage: UNK
     Route: 048

REACTIONS (6)
  - CONFUSIONAL STATE [None]
  - BRADYCARDIA [None]
  - HYPOTENSION [None]
  - AGGRESSION [None]
  - SOMNOLENCE [None]
  - NIGHTMARE [None]
